FAERS Safety Report 7407822-3 (Version None)
Quarter: 2011Q2

REPORT INFORMATION
  Report Type: 
  Country: None (occurrence: None)
  Receive Date: 20110412
  Receipt Date: 20110329
  Transmission Date: 20111010
  Serious: Yes (Other)
  Sender: FDA-Public Use
  Company Number: PHHY2011US29583

PATIENT
  Age: 22 Year
  Sex: Male

DRUGS (1)
  1. FANAPT [Suspect]
     Dosage: UNK UKN, UNK

REACTIONS (1)
  - RETROGRADE EJACULATION [None]
